FAERS Safety Report 12449420 (Version 11)
Quarter: 2018Q4

REPORT INFORMATION
  Report Type: Report from Study
  Country: CA (occurrence: CA)
  Receive Date: 20160608
  Receipt Date: 20181026
  Transmission Date: 20190204
  Serious: Yes (Other)
  Sender: FDA-Public Use
  Company Number: PHHY2016CA078439

PATIENT
  Age: 45 Year
  Sex: Male

DRUGS (3)
  1. OCTREOTIDE. [Suspect]
     Active Substance: OCTREOTIDE
     Indication: CARCINOID TUMOUR
     Dosage: 100 UG, TID
     Route: 030
     Dates: start: 20160131
  2. APO METOPROLOL [Concomitant]
     Active Substance: METOPROLOL
     Indication: PRODUCT USED FOR UNKNOWN INDICATION
     Dosage: 0.5 DF, BID
     Route: 048
     Dates: start: 20160315
  3. SANDOSTATIN LAR DEPOT [Suspect]
     Active Substance: OCTREOTIDE ACETATE
     Indication: CARCINOID TUMOUR
     Dosage: 30 MG, QMO (EVERY 4 WEEKS)
     Route: 030
     Dates: start: 20160406

REACTIONS (10)
  - Gastrointestinal neoplasm [Unknown]
  - Pain [Unknown]
  - Product use issue [Unknown]
  - Blood pressure increased [Unknown]
  - Haematoma [Unknown]
  - Post procedural complication [Unknown]
  - Rheumatoid arthritis [Unknown]
  - Lymphadenopathy [Unknown]
  - Hormone level abnormal [Unknown]
  - Hepatic neoplasm [Unknown]

NARRATIVE: CASE EVENT DATE: 20160727
